FAERS Safety Report 24216214 (Version 3)
Quarter: 2024Q3

REPORT INFORMATION
  Report Type: Report from Study
  Country: IQ (occurrence: IQ)
  Receive Date: 20240816
  Receipt Date: 20240828
  Transmission Date: 20241016
  Serious: Yes (Other)
  Sender: REGENERON
  Company Number: IQ-BAYER-2024A115671

PATIENT
  Age: 56 Year
  Sex: Male

DRUGS (2)
  1. EYLEA [Suspect]
     Active Substance: AFLIBERCEPT
     Indication: Diabetic retinal oedema
     Dosage: MORE THAN 35 DOSE IN RIGHT EYE, SOL FOR INJ, 40 MG/ML
     Dates: start: 2020, end: 202407
  2. EYLEA [Suspect]
     Active Substance: AFLIBERCEPT
     Dosage: FIRST DOSE IN LEFT EYE, INJUCTION, MONTHLY, SOL FOR INJ, 40 MG/ML
     Dates: start: 202408

REACTIONS (2)
  - Retinal haemorrhage [Recovering/Resolving]
  - Eye haemorrhage [Recovering/Resolving]
